FAERS Safety Report 9637951 (Version 2)
Quarter: 2016Q1

REPORT INFORMATION
  Report Type: Spontaneous
  Country: US (occurrence: US)
  Receive Date: 20131022
  Receipt Date: 20160111
  Transmission Date: 20160526
  Serious: Yes (Hospitalization, Other)
  Sender: FDA-Public Use
  Company Number: US-ELI_LILLY_AND_COMPANY-US201310004367

PATIENT
  Sex: Female

DRUGS (3)
  1. LANTUS [Concomitant]
     Active Substance: INSULIN GLARGINE
     Indication: PRODUCT USED FOR UNKNOWN INDICATION
     Dosage: UNK, UNKNOWN
     Route: 065
  2. HUMALOG [Suspect]
     Active Substance: INSULIN LISPRO
     Indication: TYPE 2 DIABETES MELLITUS
     Dosage: 20 U, WITH MEALS
     Route: 065
  3. HUMALOG [Suspect]
     Active Substance: INSULIN LISPRO
     Indication: DIABETES MELLITUS INADEQUATE CONTROL

REACTIONS (9)
  - Injection site infection [Recovered/Resolved]
  - Colon cancer [Unknown]
  - Tachycardia [Unknown]
  - Necrosis [Recovered/Resolved]
  - Breast cancer stage IV [Unknown]
  - Blood glucose increased [Unknown]
  - Injection site infection [Unknown]
  - Thrombosis [Unknown]
  - Lymphadenopathy [Unknown]
